FAERS Safety Report 7986366-4 (Version None)
Quarter: 2011Q4

REPORT INFORMATION
  Report Type: 
  Country: None (occurrence: None)
  Receive Date: 20111216
  Receipt Date: 20110131
  Transmission Date: 20120403
  Serious: No
  Sender: FDA-Public Use
  Company Number: US-GLAXOSMITHKLINE-A0910701A

PATIENT
  Age: 73 Year
  Sex: Female

DRUGS (3)
  1. CLONIDINE [Suspect]
     Indication: PRODUCT USED FOR UNKNOWN INDICATION
     Dosage: 3MG CONTINUOUS
     Route: 062
     Dates: start: 20110301
  2. FELODIPINE [Concomitant]
  3. COREG CR [Suspect]
     Indication: BLOOD PRESSURE
     Dosage: 40MG PER DAY
     Route: 048

REACTIONS (5)
  - NAUSEA [None]
  - SOMNOLENCE [None]
  - BLOOD PRESSURE INCREASED [None]
  - INSOMNIA [None]
  - FEELING ABNORMAL [None]
